FAERS Safety Report 10059850 (Version 2)
Quarter: 2014Q2

REPORT INFORMATION
  Report Type: Spontaneous
  Country: US (occurrence: US)
  Receive Date: 20140404
  Receipt Date: 20140404
  Transmission Date: 20141212
  Serious: Yes (Hospitalization)
  Sender: FDA-Public Use
  Company Number: US-GLAXOSMITHKLINE-A0857139A

PATIENT
  Age: 46 Year
  Sex: Female

DRUGS (8)
  1. AVANDAMET [Suspect]
     Indication: DIABETES MELLITUS
     Route: 048
     Dates: start: 200501, end: 200503
  2. AVANDIA [Suspect]
     Indication: DIABETES MELLITUS
     Dosage: 4MG TWICE PER DAY
     Route: 048
     Dates: start: 200505, end: 200904
  3. ABILIFY [Concomitant]
  4. GLIPIZIDE [Concomitant]
  5. METFORMIN [Concomitant]
  6. LISINOPRIL [Concomitant]
  7. TEMAZEPAM [Concomitant]
  8. PROZAC [Concomitant]

REACTIONS (9)
  - Myocardial infarction [Not Recovered/Not Resolved]
  - Cardiac arrest [Unknown]
  - Ventricular fibrillation [Unknown]
  - Syncope [Unknown]
  - Angina pectoris [Unknown]
  - Respiratory arrest [Unknown]
  - Thrombosis in device [Unknown]
  - Conjunctival haemorrhage [Unknown]
  - Bradycardia [Unknown]
